FAERS Safety Report 9557497 (Version 1)
Quarter: 2013Q3

REPORT INFORMATION
  Report Type: Spontaneous
  Country: US (occurrence: None)
  Receive Date: 20130726
  Receipt Date: 20130726
  Transmission Date: 20140515
  Serious: Yes (Hospitalization, Other)
  Sender: FDA-Public Use
  Company Number: UTC-020115

PATIENT
  Age: 40 Year
  Sex: Female
  Weight: 108 kg

DRUGS (3)
  1. REMODULIN [Suspect]
     Indication: PULMONARY ARTERIAL HYPERTENSION
     Dosage: 1 IN 1 ML
     Route: 042
     Dates: start: 20120523
  2. NORVASC (AMLODIPINE BESILATE) [Concomitant]
  3. METOPOROLOL (METOPROLOL) [Concomitant]

REACTIONS (3)
  - Bacteraemia [None]
  - Cellulitis [None]
  - Device leakage [None]
